FAERS Safety Report 9757572 (Version 6)
Quarter: 2016Q2

REPORT INFORMATION
  Report Type: Report from Study
  Country: BR (occurrence: BR)
  Receive Date: 20140218
  Receipt Date: 20160526
  Transmission Date: 20160815
  Serious: Yes (Other)
  Sender: FDA-Public Use
  Company Number: BR-ROCHE-1317786

PATIENT
  Sex: Female
  Weight: 55 kg

DRUGS (11)
  1. ACTEMRA [Suspect]
     Active Substance: TOCILIZUMAB
     Indication: RHEUMATOID ARTHRITIS
     Route: 042
     Dates: start: 20131119
  2. LISADOR [Concomitant]
     Active Substance: DIPYRONE\PROMETHAZINE HYDROCHLORIDE
     Indication: PAIN
  3. ALDACTONE (BRAZIL) [Concomitant]
  4. PRELONE [Concomitant]
     Active Substance: PREDNISOLONE
  5. PARACETAMOL [Concomitant]
     Active Substance: ACETAMINOPHEN
  6. ROSUVASTATIN. [Concomitant]
     Active Substance: ROSUVASTATIN
  7. NIMESULIDA [Concomitant]
     Active Substance: NIMESULIDE
  8. ATENOLOL. [Concomitant]
     Active Substance: ATENOLOL
  9. PREDNISONE. [Concomitant]
     Active Substance: PREDNISONE
     Indication: RHEUMATOID ARTHRITIS
     Route: 065
  10. METHOTREXATE [Concomitant]
     Active Substance: METHOTREXATE
     Indication: RHEUMATOID ARTHRITIS
     Route: 065
  11. OMEPRAZOLE. [Concomitant]
     Active Substance: OMEPRAZOLE
     Indication: GASTRIC DISORDER
     Route: 065

REACTIONS (11)
  - Fatigue [Recovered/Resolved]
  - Malaise [Unknown]
  - Peripheral swelling [Recovered/Resolved]
  - Foot deformity [Unknown]
  - Swelling [Recovered/Resolved]
  - Therapeutic response decreased [Unknown]
  - Contusion [Recovered/Resolved]
  - Hypersensitivity [Unknown]
  - Choking sensation [Recovered/Resolved]
  - Foot deformity [Not Recovered/Not Resolved]
  - Burning sensation [Unknown]

NARRATIVE: CASE EVENT DATE: 2016
